FAERS Safety Report 7340565-3 (Version None)
Quarter: 2011Q1

REPORT INFORMATION
  Report Type: 
  Country: None (occurrence: None)
  Receive Date: 20110309
  Receipt Date: 20110303
  Transmission Date: 20110831
  Serious: Yes (Other)
  Sender: FDA-Public Use
  Company Number: DE-PFIZER INC-2011046649

PATIENT
  Age: 41 Year
  Sex: Female

DRUGS (1)
  1. SUTENT [Suspect]
     Dosage: 50 MG, 1X/DAY, WITH 2 WEEKS PAUSE
     Dates: start: 20100801

REACTIONS (2)
  - HAEMANGIOPERICYTOMA [None]
  - NEOPLASM MALIGNANT [None]
